FAERS Safety Report 16160157 (Version 5)
Quarter: 2019Q3

REPORT INFORMATION
  Report Type: Spontaneous
  Country: US (occurrence: US)
  Receive Date: 20190404
  Receipt Date: 20190711
  Transmission Date: 20191004
  Serious: Yes (Death, Hospitalization)
  Sender: FDA-Public Use
  Company Number: US-ACTELION-A-US2019-188524

PATIENT
  Age: 49 Year
  Sex: Male
  Weight: 80.73 kg

DRUGS (7)
  1. UPTRAVI [Suspect]
     Active Substance: SELEXIPAG
     Dosage: 1200 MCG, BID
     Route: 048
  2. UPTRAVI [Suspect]
     Active Substance: SELEXIPAG
     Dosage: 1000 UNK
     Route: 048
  3. AMLODIPINE [Concomitant]
     Active Substance: AMLODIPINE BESYLATE
  4. SYMBICORT [Concomitant]
     Active Substance: BUDESONIDE\FORMOTEROL FUMARATE DIHYDRATE
     Dosage: 2 PUFFS (160/4.5), BID
     Route: 055
     Dates: start: 201709
  5. TADALAFIL. [Concomitant]
     Active Substance: TADALAFIL
     Dosage: 40 MG, QD
     Route: 048
     Dates: start: 201709
  6. LETAIRIS [Concomitant]
     Active Substance: AMBRISENTAN
     Dosage: 10 MG, QD
     Route: 048
     Dates: start: 201709
  7. UPTRAVI [Suspect]
     Active Substance: SELEXIPAG
     Indication: PULMONARY ARTERIAL HYPERTENSION
     Dosage: 1400 MCG, BID
     Route: 048
     Dates: start: 201709

REACTIONS (36)
  - Lung disorder [Unknown]
  - Hospitalisation [Unknown]
  - Dyspnoea exertional [Recovered/Resolved]
  - Myocardial infarction [Unknown]
  - Gastrooesophageal reflux disease [Unknown]
  - Pulmonary arterial hypertension [Recovering/Resolving]
  - Loss of consciousness [Unknown]
  - Acute kidney injury [Recovered/Resolved]
  - Wheezing [Unknown]
  - Dyspnoea at rest [Recovered/Resolved]
  - Oxygen saturation decreased [Recovered/Resolved]
  - Dizziness [Unknown]
  - Product dose omission [Unknown]
  - Death [Fatal]
  - Electrocardiogram T wave inversion [Unknown]
  - Blood creatinine increased [Recovered/Resolved]
  - Bronchitis [Recovering/Resolving]
  - Pulmonary arterial pressure increased [Unknown]
  - Brain natriuretic peptide increased [Recovering/Resolving]
  - Hypoxia [Recovered/Resolved]
  - Cardiomegaly [Unknown]
  - Aspartate aminotransferase increased [Recovered/Resolved]
  - Tobacco abuse [Unknown]
  - Dyspnoea [Recovered/Resolved]
  - Chest pain [Unknown]
  - Tachypnoea [Unknown]
  - Pneumonia [Unknown]
  - Pulmonary artery dilatation [Unknown]
  - Right ventricular dilatation [Unknown]
  - Blood alkaline phosphatase increased [Recovering/Resolving]
  - Cardiac failure congestive [Unknown]
  - Tachycardia [Unknown]
  - ECG electrically inactive area [Unknown]
  - Cough [Unknown]
  - Alanine aminotransferase increased [Recovering/Resolving]
  - Dyspnoea paroxysmal nocturnal [Unknown]

NARRATIVE: CASE EVENT DATE: 201903
